FAERS Safety Report 8762351 (Version 3)
Quarter: 2012Q4

REPORT INFORMATION
  Report Type: 
  Country: JP (occurrence: JP)
  Receive Date: 20120830
  Receipt Date: 20121228
  Transmission Date: 20130627
  Serious: Yes (Death, Hospitalization)
  Sender: FDA-Public Use
  Company Number: JP-AMGEN-JPNSP2012053389

PATIENT
  Age: 79 Year
  Sex: Male
  Weight: 54 kg

DRUGS (10)
  1. VECTIBIX [Suspect]
     Indication: COLORECTAL CANCER
     Dosage: 324 mg, q2wk
     Route: 041
     Dates: start: 20110915, end: 201111
  2. VECTIBIX [Suspect]
     Dosage: 324 mg, q2wk
     Route: 041
     Dates: start: 20111214, end: 20120111
  3. VECTIBIX [Suspect]
     Dosage: UNK UNK, q2wk
     Route: 041
     Dates: start: 20120208, end: 20120516
  4. OXALIPLATIN [Suspect]
     Indication: COLORECTAL CANCER
     Dosage: 120 mg, q2wk
     Route: 041
     Dates: start: 20110915, end: 20120404
  5. 5-FU [Suspect]
     Indication: COLORECTAL CANCER
     Dosage: 400 mg, q2wk
     Route: 040
     Dates: start: 20110915, end: 20111012
  6. 5-FU [Suspect]
     Dosage: 3600 mg, q2wk
     Dates: start: 20110915, end: 20120516
  7. ISOVORIN                           /06682103/ [Concomitant]
     Indication: COLORECTAL CANCER
     Dosage: 300 mg, q2wk
     Route: 041
     Dates: start: 20110915, end: 20120516
  8. BLOPRESS [Concomitant]
     Indication: HYPERTENSION
     Dosage: UNK
     Route: 048
  9. CASODEX [Concomitant]
     Indication: PROSTATE CANCER
     Dosage: UNK
     Route: 048
  10. PLETAAL [Concomitant]
     Dosage: UNK
     Route: 048

REACTIONS (5)
  - Interstitial lung disease [Fatal]
  - Skin fissures [Recovering/Resolving]
  - Paronychia [Unknown]
  - Neutrophil count decreased [Recovered/Resolved]
  - Vomiting [Recovered/Resolved]
